FAERS Safety Report 8648095 (Version 6)
Quarter: 2013Q2

REPORT INFORMATION
  Report Type: Spontaneous
  Country: US (occurrence: US)
  Receive Date: 20120703
  Receipt Date: 20130603
  Transmission Date: 20140414
  Serious: No
  Sender: FDA-Public Use
  Company Number: US-ASTRAZENECA-2012SE38294

PATIENT
  Sex: Female

DRUGS (1)
  1. NEXIUM [Suspect]
     Indication: GASTROOESOPHAGEAL REFLUX DISEASE
     Route: 048

REACTIONS (12)
  - Gastrooesophageal reflux disease [Unknown]
  - Throat irritation [Unknown]
  - Pain [Unknown]
  - Stress [Unknown]
  - Weight decreased [Unknown]
  - Feeling abnormal [Unknown]
  - Oropharyngeal discomfort [Unknown]
  - Nausea [Unknown]
  - Dysgeusia [Unknown]
  - Headache [Unknown]
  - Vomiting [Unknown]
  - Drug dose omission [Unknown]
